FAERS Safety Report 19409856 (Version 1)
Quarter: 2021Q2

REPORT INFORMATION
  Report Type: Report from Study
  Country: None (occurrence: US)
  Receive Date: 20210614
  Receipt Date: 20210614
  Transmission Date: 20210717
  Serious: Yes (Hospitalization, Other)
  Sender: FDA-Public Use
  Company Number: US-ABBVIE-21K-163-3944907-00

PATIENT
  Sex: Male

DRUGS (2)
  1. VORICONAZOLE. [Suspect]
     Active Substance: VORICONAZOLE
     Indication: PRODUCT USED FOR UNKNOWN INDICATION
     Route: 065
  2. VENCLEXTA [Suspect]
     Active Substance: VENETOCLAX
     Indication: ACUTE MYELOID LEUKAEMIA
     Route: 048
     Dates: start: 202004

REACTIONS (8)
  - Peripheral swelling [Unknown]
  - Joint swelling [Unknown]
  - Head injury [Unknown]
  - Angioplasty [Unknown]
  - Heart rate decreased [Unknown]
  - Atrial fibrillation [Unknown]
  - Fall [Unknown]
  - Erythema [Unknown]

NARRATIVE: CASE EVENT DATE: 2021
